FAERS Safety Report 6378769-9 (Version None)
Quarter: 2009Q3

REPORT INFORMATION
  Report Type: 
  Country: None (occurrence: None)
  Receive Date: 20090921
  Receipt Date: 20090916
  Transmission Date: 20100115
  Serious: Yes (Other)
  Sender: FDA-Public Use
  Company Number: 2009SP025679

PATIENT
  Age: 47 Year
  Sex: Male

DRUGS (3)
  1. PROVENTIL-HFA [Suspect]
     Indication: DRUG USE FOR UNKNOWN INDICATION
  2. PROVENTIL-HFA [Concomitant]
  3. PROAIR HFA [Concomitant]

REACTIONS (2)
  - HAEMOPTYSIS [None]
  - THROAT TIGHTNESS [None]
